FAERS Safety Report 6091737-X (Version None)
Quarter: 2009Q1

REPORT INFORMATION
  Report Type: 
  Country: None (occurrence: None)
  Receive Date: 20090225
  Receipt Date: 20080625
  Transmission Date: 20090719
  Serious: No
  Sender: FDA-Public Use
  Company Number: A0726571A

PATIENT
  Sex: Female

DRUGS (2)
  1. VALTREX [Suspect]
     Indication: GENITAL HERPES
     Route: 048
  2. NO CONCURRENT MEDICATION [Concomitant]

REACTIONS (4)
  - ARTHRALGIA [None]
  - AUTOIMMUNE DISORDER [None]
  - CONNECTIVE TISSUE DISORDER [None]
  - ORAL HERPES [None]
